FAERS Safety Report 9537068 (Version 1)
Quarter: 2013Q3

REPORT INFORMATION
  Report Type: Spontaneous
  Country: US (occurrence: US)
  Receive Date: 20130919
  Receipt Date: 20130919
  Transmission Date: 20140515
  Serious: No
  Sender: FDA-Public Use
  Company Number: US-PFIZER INC-2013267467

PATIENT
  Age: 52 Year
  Sex: Female
  Weight: 47.62 kg

DRUGS (2)
  1. ESTRING [Suspect]
     Indication: VULVOVAGINAL DRYNESS
     Dosage: UNK
     Route: 067
  2. CLARITIN-D [Concomitant]
     Indication: HYPERSENSITIVITY
     Dosage: UNK, AS NEEDED

REACTIONS (2)
  - Blood oestrogen decreased [Unknown]
  - Drug ineffective [Unknown]
